FAERS Safety Report 25510394 (Version 1)
Quarter: 2025Q3

REPORT INFORMATION
  Report Type: Spontaneous
  Country: US (occurrence: US)
  Receive Date: 20250703
  Receipt Date: 20250703
  Transmission Date: 20251021
  Serious: No
  Sender: RADIUS PHARM
  Company Number: US-RADIUS HEALTH INC.-2024US003343

PATIENT
  Sex: Female

DRUGS (1)
  1. TYMLOS [Suspect]
     Active Substance: ABALOPARATIDE
     Indication: Senile osteoporosis
     Route: 058

REACTIONS (9)
  - Therapy interrupted [Unknown]
  - Constipation [Unknown]
  - Injection site pain [Unknown]
  - Sensation of foreign body [Unknown]
  - Wrong technique in product usage process [Unknown]
  - Weight increased [Unknown]
  - Increased appetite [Unknown]
  - Headache [Unknown]
  - Gastrointestinal disorder [Unknown]
